FAERS Safety Report 4425573-4 (Version None)
Quarter: 2004Q3

REPORT INFORMATION
  Report Type: 
  Country: None (occurrence: None)
  Receive Date: 20040810
  Receipt Date: 20040728
  Transmission Date: 20050211
  Serious: Yes (Other)
  Sender: FDA-Public Use
  Company Number: S04-USA-03832-02

PATIENT
  Age: 85 Year
  Sex: Female
  Weight: 62.1428 kg

DRUGS (18)
  1. NAMENDA [Suspect]
     Indication: SENILE DEMENTIA
     Dosage: 10 MG QD PO
     Route: 048
     Dates: start: 20040517, end: 20040523
  2. NAMENDA [Suspect]
     Indication: SENILE DEMENTIA
     Dosage: 15 MG QD PO
     Route: 048
     Dates: start: 20040524, end: 20040530
  3. NAMENDA [Suspect]
     Indication: SENILE DEMENTIA
     Dosage: 10 MG BID PO
     Route: 048
     Dates: start: 20040531
  4. NAMENDA [Suspect]
     Indication: SENILE DEMENTIA
     Dosage: 5 MG QD PO
     Route: 048
     Dates: start: 20040510, end: 20040516
  5. DARVOCET-N 100 [Concomitant]
  6. TYLENOL [Concomitant]
  7. DULCOLAX [Concomitant]
  8. PHENERGAN HCL [Concomitant]
  9. NEXIUM [Concomitant]
  10. MULTI-VITAMIN [Concomitant]
  11. ASPIRIN [Concomitant]
  12. LOPRESSOR [Concomitant]
  13. NORVASC [Concomitant]
  14. PEPCID [Concomitant]
  15. REMERON [Concomitant]
  16. SYNTHROID [Concomitant]
  17. REGLAN [Concomitant]
  18. PROTONIX [Concomitant]

REACTIONS (2)
  - BLOOD GLUCOSE INCREASED [None]
  - GLYCOSYLATED HAEMOGLOBIN INCREASED [None]
